FAERS Safety Report 14689927 (Version 1)
Quarter: 2018Q1

REPORT INFORMATION
  Report Type: Spontaneous
  Country: US (occurrence: US)
  Receive Date: 20180327
  Receipt Date: 20180327
  Transmission Date: 20180509
  Serious: No
  Sender: FDA-Public Use
  Company Number: None

PATIENT
  Age: 51 Year
  Sex: Female
  Weight: 49.5 kg

DRUGS (6)
  1. VITAMIN D3 [Concomitant]
     Active Substance: CHOLECALCIFEROL
  2. CALCIUM [Concomitant]
     Active Substance: CALCIUM
  3. PROBIOTIC [Concomitant]
     Active Substance: PROBIOTICS NOS
  4. YUVAFEM [Suspect]
     Active Substance: ESTRADIOL HEMIHYDRATE
     Indication: ATROPHIC VULVOVAGINITIS
     Dosage: ?          OTHER FREQUENCY:3X A WEEK;?
     Route: 067
     Dates: start: 20170301, end: 20170601
  5. NATURE-THROID [Concomitant]
     Active Substance: THYROID, PORCINE
  6. MULTI VITAMIN [Concomitant]
     Active Substance: VITAMINS

REACTIONS (3)
  - Migraine [None]
  - Rash [None]
  - Vulvovaginal discomfort [None]

NARRATIVE: CASE EVENT DATE: 20170401
